FAERS Safety Report 17535719 (Version 1)
Quarter: 2020Q1

REPORT INFORMATION
  Report Type: Report from Study
  Country: None (occurrence: US)
  Receive Date: 20200312
  Receipt Date: 20200312
  Transmission Date: 20200409
  Serious: Yes (Hospitalization)
  Sender: FDA-Public Use
  Company Number: US-ABBVIE-20K-163-3314968-00

PATIENT
  Sex: Male

DRUGS (1)
  1. HUMIRA [Suspect]
     Active Substance: ADALIMUMAB
     Indication: ANKYLOSING SPONDYLITIS
     Route: 058
     Dates: start: 2014

REACTIONS (7)
  - Bronchitis [Recovered/Resolved]
  - Therapeutic response shortened [Not Recovered/Not Resolved]
  - Malaise [Recovered/Resolved]
  - Respiratory disorder [Recovered/Resolved]
  - Gallbladder disorder [Recovered/Resolved]
  - Immunodeficiency [Recovered/Resolved]
  - Ankylosing spondylitis [Not Recovered/Not Resolved]
